FAERS Safety Report 9501797 (Version 1)
Quarter: 2013Q3

REPORT INFORMATION
  Report Type: Spontaneous
  Country: BE (occurrence: BE)
  Receive Date: 20130905
  Receipt Date: 20130905
  Transmission Date: 20140515
  Serious: Yes (Death, Hospitalization)
  Sender: FDA-Public Use
  Company Number: BE-B.I. PHARMACEUTICALS,INC./RIDGEFIELD-2013-BI-27164BL

PATIENT
  Sex: Female

DRUGS (4)
  1. SPIRIVA [Suspect]
     Indication: CHRONIC OBSTRUCTIVE PULMONARY DISEASE
     Dosage: DOSE PER APPLICATION: 0, 18
     Dates: end: 2007
  2. SYMBICORT [Concomitant]
     Indication: CHRONIC OBSTRUCTIVE PULMONARY DISEASE
  3. FRAXIPARINE [Concomitant]
     Indication: PERIPHERAL VASCULAR DISORDER
  4. CORUNO [Concomitant]

REACTIONS (3)
  - Chronic obstructive pulmonary disease [Fatal]
  - Drug intolerance [Unknown]
  - Urinary retention [Unknown]
